FAERS Safety Report 19988316 (Version 1)
Quarter: 2021Q4

REPORT INFORMATION
  Report Type: Spontaneous
  Country: US (occurrence: BR)
  Receive Date: 20211022
  Receipt Date: 20211022
  Transmission Date: 20220304
  Serious: Yes (Disabling)
  Sender: FDA-Public Use
  Company Number: BR-BIOMARINAP-BR-2021-139200

PATIENT
  Age: 14 Year
  Sex: Male
  Weight: 24 kg

DRUGS (2)
  1. ALDURAZYME [Suspect]
     Active Substance: LARONIDASE
     Indication: Mucopolysaccharidosis I
     Dosage: QOW
     Route: 041
     Dates: start: 20081201
  2. ALDURAZYME [Suspect]
     Active Substance: LARONIDASE
     Dosage: QOW
     Route: 041
     Dates: start: 20081201

REACTIONS (2)
  - Aphasia [Unknown]
  - Product dose omission issue [Unknown]

NARRATIVE: CASE EVENT DATE: 20210617
